FAERS Safety Report 21456664 (Version 1)
Quarter: 2022Q4

REPORT INFORMATION
  Report Type: Spontaneous
  Country: TR (occurrence: TR)
  Receive Date: 20221014
  Receipt Date: 20221014
  Transmission Date: 20230113
  Serious: Yes (Hospitalization)
  Sender: FDA-Public Use
  Company Number: TR-ORGANON-O2210TUR000859

PATIENT
  Age: 50 Year
  Sex: Female

DRUGS (4)
  1. MONTELUKAST SODIUM [Suspect]
     Active Substance: MONTELUKAST SODIUM
     Dosage: UNK
     Route: 048
  2. SALMETEROL [Suspect]
     Active Substance: SALMETEROL
     Dosage: UNK
  3. THEOPHYLLINE [Suspect]
     Active Substance: THEOPHYLLINE
     Dosage: UNK
  4. TIOTROPIUM [Suspect]
     Active Substance: TIOTROPIUM
     Dosage: UNK

REACTIONS (1)
  - Asthma [Unknown]
